FAERS Safety Report 16850794 (Version 1)
Quarter: 2019Q3

REPORT INFORMATION
  Report Type: Spontaneous
  Country: US (occurrence: US)
  Receive Date: 20190925
  Receipt Date: 20190925
  Transmission Date: 20191005
  Serious: No
  Sender: FDA-Public Use
  Company Number: US-THERAPEUTICSMD-2019TMD01245

PATIENT
  Age: 50 Year
  Sex: Female
  Weight: 65.76 kg

DRUGS (3)
  1. IMVEXXY [Suspect]
     Active Substance: ESTRADIOL
     Dosage: 10 ?G, 2X/WEEK WHILE UPRIGHT AND ACTIVE
     Route: 067
     Dates: start: 20190515
  2. UNSPECIFIED VITAMINS [Concomitant]
     Active Substance: VITAMINS
  3. IMVEXXY [Suspect]
     Active Substance: ESTRADIOL
     Indication: DYSPAREUNIA
     Dosage: 10 ?G, 1X/DAY WHILE UPRIGHT AND ACTIVE
     Route: 067
     Dates: start: 20190501, end: 20190514

REACTIONS (3)
  - Rash [Unknown]
  - Menstrual disorder [Not Recovered/Not Resolved]
  - Vulvovaginal pruritus [Recovered/Resolved]

NARRATIVE: CASE EVENT DATE: 2019
